FAERS Safety Report 26074540 (Version 1)
Quarter: 2025Q4

REPORT INFORMATION
  Report Type: Spontaneous
  Country: US (occurrence: None)
  Receive Date: 20251120
  Receipt Date: 20251120
  Transmission Date: 20260117
  Serious: Yes (Other)
  Sender: FDA-CTU
  Company Number: None

PATIENT
  Age: 75 Year
  Sex: Male

DRUGS (14)
  1. ODEFSEY [Suspect]
     Active Substance: EMTRICITABINE\RILPIVIRINE HYDROCHLORIDE\TENOFOVIR ALAFENAMIDE FUMARATE
     Indication: HIV infection
     Dosage: OTHER QUANTITY : 200-25-25 MG;?FREQUENCY : DAILY;?
     Route: 048
     Dates: start: 20240103
  2. ENTRESTO [Concomitant]
     Active Substance: SACUBITRIL\VALSARTAN
  3. ARXIGA [Concomitant]
  4. OZEMPIC [Concomitant]
     Active Substance: SEMAGLUTIDE
  5. ASPIRIN [Concomitant]
     Active Substance: ASPIRIN
  6. FAMOTIDINE [Concomitant]
     Active Substance: FAMOTIDINE
  7. OXYBUTYNIN [Concomitant]
     Active Substance: OXYBUTYNIN
  8. DULOXETINE [Concomitant]
     Active Substance: DULOXETINE
  9. CLOPIDOGREL [Concomitant]
     Active Substance: CLOPIDOGREL BISULFATE
  10. ATORVASTATIN [Concomitant]
     Active Substance: ATORVASTATIN
  11. METFORMIN [Concomitant]
     Active Substance: METFORMIN HYDROCHLORIDE
  12. PEG-3350 + ELECTROLYTES [Concomitant]
  13. SACUBITRIL\VALSARTAN [Concomitant]
     Active Substance: SACUBITRIL\VALSARTAN
  14. METOPROLOL [Concomitant]
     Active Substance: METOPROLOL

REACTIONS (3)
  - Coronary arterial stent insertion [None]
  - Rectal polypectomy [None]
  - Precancerous lesion of digestive tract [None]
